FAERS Safety Report 13928040 (Version 2)
Quarter: 2017Q3

REPORT INFORMATION
  Report Type: Report from Study
  Country: RU (occurrence: RU)
  Receive Date: 20170901
  Receipt Date: 20170906
  Transmission Date: 20171127
  Serious: Yes (Other)
  Sender: FDA-Public Use
  Company Number: RU-ROCHE-1986293

PATIENT

DRUGS (1)
  1. RITUXIMAB. [Suspect]
     Active Substance: RITUXIMAB
     Indication: SYSTEMIC LUPUS ERYTHEMATOSUS
     Route: 065

REACTIONS (9)
  - Intentional product use issue [Unknown]
  - Infusion related reaction [Unknown]
  - Influenza like illness [Unknown]
  - Thrombocytopenia [Unknown]
  - Purpura [Unknown]
  - Tendonitis [Unknown]
  - Infection [Unknown]
  - Urticaria [Unknown]
  - Off label use [Unknown]
